FAERS Safety Report 17512003 (Version 1)
Quarter: 2020Q1

REPORT INFORMATION
  Report Type: Spontaneous
  Country: US (occurrence: US)
  Receive Date: 20200307
  Receipt Date: 20200307
  Transmission Date: 20200409
  Serious: Yes (Hospitalization)
  Sender: FDA-Public Use
  Company Number: US-TEVA-2020-US-1194864

PATIENT
  Age: 57 Year
  Sex: Male
  Weight: 72.9 kg

DRUGS (1)
  1. CLOZAPINE. [Suspect]
     Active Substance: CLOZAPINE
     Dosage: 100 MG PO Q 9 AM AND 300 MG PO QHS
     Route: 048

REACTIONS (1)
  - Disability [Not Recovered/Not Resolved]

NARRATIVE: CASE EVENT DATE: 20200227
